FAERS Safety Report 25407636 (Version 1)
Quarter: 2025Q2

REPORT INFORMATION
  Report Type: Spontaneous
  Country: US (occurrence: US)
  Receive Date: 20250606
  Receipt Date: 20250606
  Transmission Date: 20250716
  Serious: Yes (Death, Hospitalization, Other)
  Sender: AMGEN
  Company Number: US-AMGEN-USASP2025108904

PATIENT

DRUGS (2)
  1. TARLATAMAB [Suspect]
     Active Substance: TARLATAMAB
     Indication: Small cell lung cancer extensive stage
     Route: 040
  2. TARLATAMAB [Suspect]
     Active Substance: TARLATAMAB
     Route: 040

REACTIONS (6)
  - Death [Fatal]
  - Small cell lung cancer [Fatal]
  - Adverse event [Unknown]
  - Cytokine release syndrome [Unknown]
  - Immune effector cell-associated neurotoxicity syndrome [Unknown]
  - Therapy partial responder [Unknown]
